FAERS Safety Report 7045666-5 (Version None)
Quarter: 2010Q4

REPORT INFORMATION
  Report Type: 
  Country: None (occurrence: None)
  Receive Date: 20101013
  Receipt Date: 20101013
  Transmission Date: 20110411
  Serious: No
  Sender: FDA-Public Use
  Company Number: None

PATIENT

DRUGS (1)
  1. SERTRALINE HYDROCHLORIDE [Suspect]
     Dosage: 50 MG ONCE - DAY PO
     Route: 048

REACTIONS (1)
  - URTICARIA [None]
